FAERS Safety Report 7811547-X (Version None)
Quarter: 2011Q4

REPORT INFORMATION
  Report Type: 
  Country: None (occurrence: None)
  Receive Date: 20111013
  Receipt Date: 20111010
  Transmission Date: 20120403
  Serious: Yes (Other)
  Sender: FDA-Public Use
  Company Number: US-PFIZER INC-2010075053

PATIENT
  Sex: Male
  Weight: 90.703 kg

DRUGS (9)
  1. DICLOFENAC [Suspect]
     Indication: ARTHRALGIA
     Dosage: UNK
  2. VALSARTAN [Concomitant]
     Indication: HYPERTENSION
     Dosage: 320 MG, 1X/DAY
     Route: 048
  3. ATIVAN [Concomitant]
     Indication: HYPERTENSION
     Dosage: UNK
  4. LIPITOR [Suspect]
     Indication: BLOOD CHOLESTEROL INCREASED
     Dosage: 10 MG, 1X/DAY
     Route: 048
     Dates: end: 20060101
  5. AMLODIPINE [Concomitant]
     Indication: HYPERTENSION
     Dosage: 5 MG, 1X/DAY
     Route: 048
  6. LIPITOR [Suspect]
     Dosage: 20 MG, 1X/DAY
     Route: 048
     Dates: start: 20060101
  7. IBUPROFEN [Suspect]
     Indication: ARTHRALGIA
     Dosage: UNK
  8. AMLODIPINE [Concomitant]
     Dosage: UNK
  9. ACETYLSALICYLIC ACID [Concomitant]
     Indication: CARDIAC DISORDER
     Dosage: 81 MG, 1X/DAY
     Route: 048

REACTIONS (5)
  - ARTHRALGIA [None]
  - MYALGIA [None]
  - DRUG INEFFECTIVE [None]
  - GLUCOSE TOLERANCE IMPAIRED [None]
  - RED BLOOD CELL SEDIMENTATION RATE DECREASED [None]
